FAERS Safety Report 4455629-1 (Version None)
Quarter: 2004Q3

REPORT INFORMATION
  Report Type: 
  Country: None (occurrence: None)
  Receive Date: 20040917
  Receipt Date: 20040909
  Transmission Date: 20050211
  Serious: Yes (Hospitalization)
  Sender: FDA-Public Use
  Company Number: 2004CG01777

PATIENT
  Age: 53 Year
  Sex: Male

DRUGS (7)
  1. MOPRAL [Suspect]
     Dosage: 1 DF DAILY PO
     Route: 048
     Dates: start: 20040716, end: 20040808
  2. AMIKACIN [Suspect]
     Dates: start: 20040727, end: 20040801
  3. ZOVIRAX [Suspect]
     Dates: start: 20040723, end: 20040812
  4. ARACYTINE [Suspect]
     Dates: start: 20040723, end: 20040724
  5. VINCRISTINE [Suspect]
     Dates: start: 20070717, end: 20040717
  6. IDARUBICINE [Suspect]
     Dates: start: 20040723, end: 20040727
  7. GENTAMYCIN SULFATE [Suspect]
     Dates: end: 20040701

REACTIONS (4)
  - FEBRILE BONE MARROW APLASIA [None]
  - PURPURA [None]
  - THERAPY NON-RESPONDER [None]
  - TOXIC SKIN ERUPTION [None]
